FAERS Safety Report 16257749 (Version 1)
Quarter: 2019Q2

REPORT INFORMATION
  Report Type: Spontaneous
  Country: FR (occurrence: FR)
  Receive Date: 20190430
  Receipt Date: 20190430
  Transmission Date: 20190711
  Serious: Yes (Hospitalization)
  Sender: FDA-Public Use
  Company Number: FR-SAOL THERAPEUTICS-2019SAO00153

PATIENT
  Age: 60 Year
  Sex: Male

DRUGS (17)
  1. BACLOFEN. [Suspect]
     Active Substance: BACLOFEN
     Dosage: 120 TO 140  MG, 1X/DAY
     Route: 048
  2. SPIRONOLACTONE. [Concomitant]
     Active Substance: SPIRONOLACTONE
     Route: 065
  3. FLECAINIDE [Concomitant]
     Active Substance: FLECAINIDE
     Route: 065
  4. NEVIRAPINE. [Concomitant]
     Active Substance: NEVIRAPINE
     Route: 065
  5. ASPIRIN. [Concomitant]
     Active Substance: ASPIRIN
     Route: 065
  6. LERCANIDIPINE [Concomitant]
     Active Substance: LERCANIDIPINE
     Route: 065
  7. BACLOFEN. [Suspect]
     Active Substance: BACLOFEN
     Indication: BINGE EATING
     Dosage: 70 MG, 1X/DAY
     Route: 048
     Dates: start: 2016
  8. BACLOFEN. [Suspect]
     Active Substance: BACLOFEN
     Dosage: 60 MG, 5X/DAY
     Route: 048
  9. BACLOFEN. [Suspect]
     Active Substance: BACLOFEN
     Dosage: 150 MG, 1X/DAY
     Route: 048
  10. RILMENIDINE [Concomitant]
     Active Substance: RILMENIDINE
     Route: 065
  11. BACLOFEN. [Suspect]
     Active Substance: BACLOFEN
     Dosage: 180 TO 200 MG, 1X/DAY
     Route: 048
  12. HYDROXYZINE [Suspect]
     Active Substance: HYDROXYZINE HYDROCHLORIDE
     Dosage: UNK
     Route: 065
  13. MIANSERINE [Suspect]
     Active Substance: MIANSERIN HYDROCHLORIDE
     Route: 065
  14. ABACAVIR-LAMIVUDINE [Concomitant]
     Route: 065
  15. TELMISARTAN. [Concomitant]
     Active Substance: TELMISARTAN
     Route: 065
  16. BISOPROLOL [Concomitant]
     Active Substance: BISOPROLOL
     Route: 065
  17. CANNABIS [Concomitant]
     Active Substance: CANNABIS SATIVA SUBSP. INDICA TOP
     Route: 065

REACTIONS (1)
  - Psychotic disorder [Recovered/Resolved]
